FAERS Safety Report 20891514 (Version 1)
Quarter: 2022Q2

REPORT INFORMATION
  Report Type: Spontaneous
  Country: CA (occurrence: None)
  Receive Date: 20220530
  Receipt Date: 20220530
  Transmission Date: 20220721
  Serious: Yes (Other)
  Sender: FDA-Public Use
  Company Number: CA-ROCHE-3100837

PATIENT
  Sex: Female

DRUGS (1)
  1. PIRFENIDONE [Suspect]
     Active Substance: PIRFENIDONE
     Indication: Product used for unknown indication
     Dosage: 1 EVERY 1 DAY
     Route: 048

REACTIONS (3)
  - Bronchiectasis [Unknown]
  - Hiatus hernia [Unknown]
  - Aortic arteriosclerosis [Unknown]
